FAERS Safety Report 6377242-1 (Version None)
Quarter: 2009Q3

REPORT INFORMATION
  Report Type: 
  Country: None (occurrence: None)
  Receive Date: 20090925
  Receipt Date: 20090916
  Transmission Date: 20100115
  Serious: Yes (Other)
  Sender: FDA-Public Use
  Company Number: B0593678A

PATIENT
  Sex: Female

DRUGS (1)
  1. REQUIP XL [Suspect]
     Indication: PARKINSON'S DISEASE
     Dosage: 16MG PER DAY
     Route: 065
     Dates: start: 20080101

REACTIONS (3)
  - OEDEMA PERIPHERAL [None]
  - PARKINSON'S DISEASE [None]
  - TENDERNESS [None]
